FAERS Safety Report 9478850 (Version 1)
Quarter: 2013Q3

REPORT INFORMATION
  Report Type: Spontaneous
  Country: US (occurrence: US)
  Receive Date: 20130827
  Receipt Date: 20130827
  Transmission Date: 20140515
  Serious: No
  Sender: FDA-Public Use
  Company Number: US-BAYER-2013-101258

PATIENT
  Age: 42 Year
  Sex: Female

DRUGS (1)
  1. CLIMARA [Suspect]
     Indication: HORMONE REPLACEMENT THERAPY
     Dosage: 0.05 MG, QD
     Route: 062
     Dates: start: 20130411

REACTIONS (2)
  - Product adhesion issue [Not Recovered/Not Resolved]
  - Migraine [Not Recovered/Not Resolved]
